FAERS Safety Report 9106710 (Version 1)
Quarter: 2013Q1

REPORT INFORMATION
  Report Type: Spontaneous
  Country: US (occurrence: US)
  Receive Date: 20130221
  Receipt Date: 20130221
  Transmission Date: 20140127
  Serious: No
  Sender: FDA-Public Use
  Company Number: US-009507513-1207USA000919

PATIENT
  Sex: Male

DRUGS (1)
  1. COPPERTONE ULTRAGUARD SPF 30 [Suspect]
     Indication: PRODUCT USED FOR UNKNOWN INDICATION
     Dosage: UNK, UNKNOWN
     Route: 061
     Dates: start: 20120626

REACTIONS (2)
  - Sunburn [Unknown]
  - Rash macular [Not Recovered/Not Resolved]
